FAERS Safety Report 22637076 (Version 1)
Quarter: 2023Q2

REPORT INFORMATION
  Report Type: Spontaneous
  Country: US (occurrence: None)
  Receive Date: 20230622
  Receipt Date: 20230622
  Transmission Date: 20230721
  Serious: Yes (Hospitalization)
  Sender: FDA-Public Use
  Company Number: None

PATIENT
  Sex: Female

DRUGS (1)
  1. SPRAVATO [Suspect]
     Active Substance: ESKETAMINE
     Indication: Product used for unknown indication
     Dosage: 28 MG/DEVICE NASAL??ADMINISTER 56 MG INTRANASALLY TWICE A WEEK?
     Route: 045
     Dates: start: 20230610

REACTIONS (3)
  - Gastric disorder [None]
  - Pain [None]
  - Oesophageal hypomotility [None]
